FAERS Safety Report 5673816-1 (Version None)
Quarter: 2008Q1

REPORT INFORMATION
  Report Type: 
  Country: None (occurrence: None)
  Receive Date: 20080319
  Receipt Date: 20080312
  Transmission Date: 20080703
  Serious: Yes (Other)
  Sender: FDA-Public Use
  Company Number: FR-PFIZER INC-2008023498

PATIENT
  Age: 55 Year
  Sex: Male

DRUGS (1)
  1. AMLOR [Suspect]
     Indication: HYPERTENSION
     Route: 048

REACTIONS (1)
  - TYPE 2 DIABETES MELLITUS [None]
